FAERS Safety Report 8044245-0 (Version None)
Quarter: 2011Q4

REPORT INFORMATION
  Report Type: 
  Country: None (occurrence: None)
  Receive Date: 20111202
  Receipt Date: 20110304
  Transmission Date: 20120403
  Serious: Yes (Other)
  Sender: FDA-Public Use
  Company Number: WAES 1001USA01815

PATIENT
  Age: 59 Year
  Sex: Female

DRUGS (6)
  1. EFFEXOR [Concomitant]
  2. FOSAMAX [Suspect]
     Indication: OSTEOPOROSIS
     Dosage: 70 MG/WKY/PO, DAILY/PO, PO, 70 MG/WKY/PO
     Route: 048
     Dates: start: 19900101, end: 20051101
  3. FOSAMAX [Suspect]
     Indication: OSTEOPOROSIS
     Dosage: 70 MG/WKY/PO, DAILY/PO, PO, 70 MG/WKY/PO
     Route: 048
     Dates: start: 19930101
  4. FOSAMAX [Suspect]
     Indication: OSTEOPOROSIS
     Dosage: 70 MG/WKY/PO, DAILY/PO, PO, 70 MG/WKY/PO
     Route: 048
     Dates: start: 19980101, end: 20050901
  5. FOSAMAX [Suspect]
     Indication: OSTEOPOROSIS
     Dosage: 70 MG/WKY/PO, DAILY/PO, PO, 70 MG/WKY/PO
     Route: 048
     Dates: start: 20030301, end: 20050909
  6. WELLBUTRIN [Concomitant]

REACTIONS (20)
  - HYPERTENSION [None]
  - OESOPHAGEAL DISORDER [None]
  - ANXIETY [None]
  - ORAL TORUS [None]
  - IMPAIRED HEALING [None]
  - BLOOD CHOLESTEROL INCREASED [None]
  - GASTROINTESTINAL DISORDER [None]
  - GASTROOESOPHAGEAL REFLUX DISEASE [None]
  - ANAL HAEMORRHAGE [None]
  - CONTUSION [None]
  - TOOTH DISORDER [None]
  - PALPITATIONS [None]
  - LACERATION [None]
  - HYPERCHOLESTEROLAEMIA [None]
  - OSTEONECROSIS OF JAW [None]
  - ARTHRITIS [None]
  - CHEST PAIN [None]
  - TOOTH FRACTURE [None]
  - HYPOTHYROIDISM [None]
  - RECTAL HAEMORRHAGE [None]
